FAERS Safety Report 8855433 (Version 1)
Quarter: 2012Q4

REPORT INFORMATION
  Report Type: 
  Country: US (occurrence: US)
  Receive Date: 20121023
  Receipt Date: 20121023
  Transmission Date: 20130627
  Serious: No
  Sender: FDA-Public Use
  Company Number: US-AMGEN-USASP2012056674

PATIENT
  Sex: Male

DRUGS (1)
  1. ENBREL [Suspect]
     Indication: ANKYLOSING SPONDYLITIS
     Dosage: 50 mg, q2wk
     Route: 058
     Dates: start: 20090615

REACTIONS (2)
  - Myositis [Not Recovered/Not Resolved]
  - Myalgia [Not Recovered/Not Resolved]
